FAERS Safety Report 17715353 (Version 1)
Quarter: 2020Q2

REPORT INFORMATION
  Report Type: Spontaneous
  Country: ES (occurrence: ES)
  Receive Date: 20200427
  Receipt Date: 20200427
  Transmission Date: 20200714
  Serious: Yes (Death, Life-Threatening)
  Sender: FDA-Public Use
  Company Number: NVSC2020ES112455

PATIENT
  Age: 14 Year
  Sex: Male

DRUGS (13)
  1. METHYLPREDNISOLONE SODIUM SUCCINATE. [Suspect]
     Active Substance: METHYLPREDNISOLONE SODIUM SUCCINATE
     Indication: ACUTE LYMPHOCYTIC LEUKAEMIA
     Dosage: 40 MG, UNK
     Route: 065
     Dates: start: 20190319
  2. CYCLOPHOSPHAMIDE. [Suspect]
     Active Substance: CYCLOPHOSPHAMIDE
     Indication: ACUTE LYMPHOCYTIC LEUKAEMIA
     Dosage: 400 MG/M2, ONCE/SINGLE
     Route: 065
     Dates: start: 20190514, end: 20190514
  3. VINCRISTINE [Suspect]
     Active Substance: VINCRISTINE
     Indication: ACUTE LYMPHOCYTIC LEUKAEMIA
     Dosage: UNK, ONCE/SINGLE
     Route: 065
     Dates: start: 20190424, end: 20190424
  4. CYTARABINE. [Suspect]
     Active Substance: CYTARABINE
     Indication: ACUTE LYMPHOCYTIC LEUKAEMIA
     Dosage: 30 MG, UNK
     Route: 065
     Dates: start: 20190424
  5. MORFINA [Concomitant]
     Active Substance: MORPHINE HYDROCHLORIDE
     Indication: BONE PAIN
     Dosage: 5 MG, AS NEEDED
     Route: 042
     Dates: start: 20190319, end: 20190525
  6. INOTUZUMAB OZOGAMICIN [Suspect]
     Active Substance: INOTUZUMAB OZOGAMICIN
     Indication: ACUTE LYMPHOCYTIC LEUKAEMIA
     Dosage: 0.89 MG, UNK
     Route: 065
     Dates: start: 20190319, end: 20190403
  7. ACICLOVIR [Concomitant]
     Active Substance: ACYCLOVIR
     Indication: INFECTION PROPHYLAXIS
     Dosage: 400 UNK, 3X/DAY (Q8H)
     Route: 048
     Dates: start: 20190319, end: 20190522
  8. MEROPENEM. [Concomitant]
     Active Substance: MEROPENEM
     Indication: COLITIS
     Dosage: 6 G, QD, 2 G, 3X/DAY (Q8H)
     Route: 042
     Dates: start: 20190515, end: 20190524
  9. METHOTREXATE SODIUM. [Suspect]
     Active Substance: METHOTREXATE SODIUM
     Indication: ACUTE LYMPHOCYTIC LEUKAEMIA
     Dosage: 15 MG, ONCE/SINGLE
     Route: 065
     Dates: start: 20190424, end: 20190424
  10. METRONIDAZOLE. [Concomitant]
     Active Substance: METRONIDAZOLE
     Indication: COLITIS
     Dosage: 2000 MG, QD, 500 MG, 4X/DAY (Q6H)
     Route: 048
     Dates: start: 20190510, end: 20190517
  11. TEICOPLANINA [Concomitant]
     Active Substance: TEICOPLANIN
     Indication: COLITIS
     Dosage: 400 MG, DAILY (QD)
     Route: 042
     Dates: start: 20190515, end: 20190520
  12. MORFINA [Concomitant]
     Active Substance: MORPHINE HYDROCHLORIDE
     Dosage: 0.04 MG/KG, (CONTINUOUS INFUSION)
     Route: 042
     Dates: start: 20190311, end: 20190525
  13. AMPHOTERICIN [Concomitant]
     Active Substance: AMPHOTERICIN B
     Indication: INFECTION PROPHYLAXIS
     Dosage: 180 MG, QD
     Route: 042
     Dates: start: 20190319, end: 20190522

REACTIONS (1)
  - Venoocclusive liver disease [Fatal]

NARRATIVE: CASE EVENT DATE: 20190517
